FAERS Safety Report 6727615-X (Version None)
Quarter: 2010Q2

REPORT INFORMATION
  Report Type: 
  Country: None (occurrence: None)
  Receive Date: 20100517
  Receipt Date: 20100409
  Transmission Date: 20101027
  Serious: Yes (Hospitalization)
  Sender: FDA-Public Use
  Company Number: FR-BAYER-201025171GPV

PATIENT
  Age: 65 Year
  Sex: Female

DRUGS (4)
  1. IZILOX [Suspect]
     Indication: SINUSITIS
     Route: 048
  2. DAFALGAN [Concomitant]
  3. IBUPROFENE [Concomitant]
  4. NASONEX [Concomitant]

REACTIONS (2)
  - CONTUSION [None]
  - HAEMORRHAGE [None]
